FAERS Safety Report 7082524-4 (Version None)
Quarter: 2010Q4

REPORT INFORMATION
  Report Type: 
  Country: None (occurrence: None)
  Receive Date: 20101026
  Receipt Date: 20101017
  Transmission Date: 20110411
  Serious: Yes (Hospitalization)
  Sender: FDA-Public Use
  Company Number: 2010EN000296

PATIENT
  Age: 32 Year
  Sex: Male

DRUGS (15)
  1. ONCASPAR [Suspect]
     Indication: ACUTE LYMPHOCYTIC LEUKAEMIA
     Dosage: 2500 IU/M2;X1;IV, 2500 IU/M2;QOW;IV
     Route: 042
     Dates: start: 20100518, end: 20100518
  2. ONCASPAR [Suspect]
     Indication: ACUTE LYMPHOCYTIC LEUKAEMIA
     Dosage: 2500 IU/M2;X1;IV, 2500 IU/M2;QOW;IV
     Route: 042
     Dates: start: 20100915, end: 20100929
  3. CYTARABINE [Suspect]
     Indication: ACUTE LYMPHOCYTIC LEUKAEMIA
     Dosage: 50 MG;X1;INTH, 40 MG;X1;INTH
     Route: 037
     Dates: start: 20100512, end: 20100512
  4. CYTARABINE [Suspect]
     Indication: ACUTE LYMPHOCYTIC LEUKAEMIA
     Dosage: 50 MG;X1;INTH, 40 MG;X1;INTH
     Route: 037
     Dates: start: 20101006, end: 20101012
  5. HYDROCORTISONE [Suspect]
     Indication: ACUTE LYMPHOCYTIC LEUKAEMIA
     Dosage: 50 MG;X1;INTH
     Route: 037
     Dates: start: 20101006, end: 20101012
  6. METHOTREXATE [Suspect]
     Indication: ACUTE LYMPHOCYTIC LEUKAEMIA
     Dosage: 79.2 MG;X1;IV, 12 MG;X1;INTH
     Dates: start: 20100517, end: 20100517
  7. METHOTREXATE [Suspect]
     Indication: ACUTE LYMPHOCYTIC LEUKAEMIA
     Dosage: 79.2 MG;X1;IV, 12 MG;X1;INTH
     Dates: start: 20101006, end: 20101012
  8. DOXORUBICIN HCL [Suspect]
     Indication: ACUTE LYMPHOCYTIC LEUKAEMIA
     Dosage: 59 MG;QD;IV, 30 MG/M**2;X1;IV
     Route: 042
     Dates: start: 20100515, end: 20100516
  9. DOXORUBICIN HCL [Suspect]
     Indication: ACUTE LYMPHOCYTIC LEUKAEMIA
     Dosage: 59 MG;QD;IV, 30 MG/M**2;X1;IV
     Route: 042
     Dates: start: 20101006, end: 20101012
  10. VINCRISTINE [Suspect]
     Indication: ACUTE LYMPHOCYTIC LEUKAEMIA
     Dosage: 2 MG;QW;IV, 2 MG;X1;IV
     Route: 042
     Dates: start: 20100515, end: 20100522
  11. VINCRISTINE [Suspect]
     Indication: ACUTE LYMPHOCYTIC LEUKAEMIA
     Dosage: 2 MG;QW;IV, 2 MG;X1;IV
     Route: 042
     Dates: start: 20101006, end: 20101006
  12. DEXAMETHASONE [Suspect]
     Indication: ACUTE LYMPHOCYTIC LEUKAEMIA
     Dosage: 18 MG/M**2;QD;PO
     Route: 048
     Dates: start: 20101006, end: 20101011
  13. MERCAPTOPURINE [Suspect]
     Indication: ACUTE LYMPHOCYTIC LEUKAEMIA
     Dosage: 50 MG/M**2;QD;PO
     Route: 048
     Dates: start: 20101006, end: 20101014
  14. KEPPRA [Concomitant]
  15. ENOXAPARIN SODIUM [Concomitant]

REACTIONS (8)
  - ASTHENIA [None]
  - CONVULSION [None]
  - DIZZINESS [None]
  - INSOMNIA [None]
  - JOINT RANGE OF MOTION DECREASED [None]
  - MUSCLE SPASMS [None]
  - SKIN WARM [None]
  - TACHYCARDIA [None]
